FAERS Safety Report 15390002 (Version 1)
Quarter: 2018Q3

REPORT INFORMATION
  Report Type: Spontaneous
  Country: US (occurrence: US)
  Receive Date: 20180907
  Receipt Date: 20180907
  Transmission Date: 20181010
  Serious: Yes (Hospitalization)
  Sender: FDA-Public Use
  Company Number: None

PATIENT
  Age: 42 Year
  Sex: Female

DRUGS (5)
  1. STELARA [Suspect]
     Active Substance: USTEKINUMAB
     Indication: CROHN^S DISEASE
     Dosage: ?          OTHER FREQUENCY:EVERY 8 WEEKS;?
     Route: 058
     Dates: start: 20171221
  2. DOXYCYCLINE MONOHYDRATE [Concomitant]
     Active Substance: DOXYCYCLINE
  3. CYMBALTA CAPSULES [Concomitant]
  4. SPIRONOLACTONE TABLETS [Concomitant]
     Active Substance: SPIRONOLACTONE
  5. POTASSIUM TABLETS [Concomitant]

REACTIONS (1)
  - Biliary colic [None]

NARRATIVE: CASE EVENT DATE: 20180902
